FAERS Safety Report 7971526-9 (Version None)
Quarter: 2011Q4

REPORT INFORMATION
  Report Type: 
  Country: None (occurrence: None)
  Receive Date: 20111212
  Receipt Date: 20111128
  Transmission Date: 20120403
  Serious: Yes (Other)
  Sender: FDA-Public Use
  Company Number: US-ELI_LILLY_AND_COMPANY-US201108004059

PATIENT
  Sex: Female

DRUGS (2)
  1. FORTEO [Suspect]
     Dosage: 20 UG, QD
  2. FORTEO [Suspect]
     Indication: OSTEOPOROSIS
     Dosage: 20 UG, QD

REACTIONS (8)
  - HYPERTENSION [None]
  - MUSCLE TWITCHING [None]
  - CONVULSION [None]
  - BLINDNESS TRANSIENT [None]
  - CEREBRAL ISCHAEMIA [None]
  - FEELING ABNORMAL [None]
  - MEDICATION ERROR [None]
  - EXPIRED DRUG ADMINISTERED [None]
